FAERS Safety Report 26190204 (Version 1)
Quarter: 2025Q4

REPORT INFORMATION
  Report Type: Report from Study
  Country: US (occurrence: US)
  Receive Date: 20251223
  Receipt Date: 20251223
  Transmission Date: 20260119
  Serious: Yes (Other)
  Sender: ROCHE
  Company Number: US-ROCHE-3360866

PATIENT
  Age: 74 Year
  Sex: Male

DRUGS (1)
  1. CELLCEPT [Suspect]
     Active Substance: MYCOPHENOLATE MOFETIL
     Indication: Systemic lupus erythematosus
     Dosage: LAST TREATMENT: 04/APR/2023
     Route: 048

REACTIONS (2)
  - Off label use [Unknown]
  - Systemic lupus erythematosus [Unknown]
